FAERS Safety Report 24000159 (Version 1)
Quarter: 2024Q2

REPORT INFORMATION
  Report Type: Spontaneous
  Country: US (occurrence: None)
  Receive Date: 20240620
  Receipt Date: 20240620
  Transmission Date: 20240715
  Serious: Yes (Hospitalization)
  Sender: FDA-Public Use
  Company Number: None

PATIENT
  Age: 78 Year
  Sex: Male
  Weight: 49.95 kg

DRUGS (14)
  1. PIMAVANSERIN [Suspect]
     Active Substance: PIMAVANSERIN
     Indication: Hallucination
     Dosage: FREQUENCY : DAILY;?
     Route: 048
     Dates: start: 20240508
  2. AMANTADINE [Concomitant]
     Active Substance: AMANTADINE
  3. GOCOVRI [Concomitant]
     Active Substance: AMANTADINE
  4. MIRTAZAPINE [Concomitant]
     Active Substance: MIRTAZAPINE
  5. ARICEPT [Concomitant]
     Active Substance: DONEPEZIL HYDROCHLORIDE
  6. MELATONIN [Concomitant]
     Active Substance: MELATONIN
  7. DONEPEZIL [Concomitant]
     Active Substance: DONEPEZIL\DONEPEZIL HYDROCHLORIDE
  8. CETIRIZINE [Concomitant]
     Active Substance: CETIRIZINE HYDROCHLORIDE
  9. DUTASTERIDE [Concomitant]
     Active Substance: DUTASTERIDE
  10. LINACLOTIDE [Concomitant]
     Active Substance: LINACLOTIDE
  11. VITAMINS [Concomitant]
     Active Substance: VITAMINS
  12. DOCUSATE SODIUM [Concomitant]
     Active Substance: DOCUSATE SODIUM
  13. PANTOPRAZOLE [Concomitant]
     Active Substance: PANTOPRAZOLE
  14. FLOMAX [Concomitant]
     Active Substance: TAMSULOSIN HYDROCHLORIDE

REACTIONS (2)
  - Hip fracture [None]
  - Fall [None]

NARRATIVE: CASE EVENT DATE: 20240608
